FAERS Safety Report 16828701 (Version 1)
Quarter: 2019Q3

REPORT INFORMATION
  Report Type: Report from Study
  Country: AT (occurrence: AT)
  Receive Date: 20190919
  Receipt Date: 20190919
  Transmission Date: 20191005
  Serious: Yes (Hospitalization, Other)
  Sender: FDA-Public Use
  Company Number: AT-PFIZER INC-2019396907

PATIENT
  Age: 61 Year
  Sex: Female
  Weight: 80 kg

DRUGS (39)
  1. NAVELBINE [Suspect]
     Active Substance: VINORELBINE TARTRATE
     Dosage: 50 MG, UNK
     Route: 048
     Dates: start: 20170530
  2. LASIX [Concomitant]
     Active Substance: FUROSEMIDE
     Dosage: UNK
  3. FORTECORTIN [DEXAMETHASONE] [Concomitant]
     Active Substance: DEXAMETHASONE
     Dosage: UNK, ONGOING = CHECKED
     Route: 065
     Dates: start: 20190215
  4. TEMESTA [LORAZEPAM] [Concomitant]
     Active Substance: LORAZEPAM
     Dosage: UNK; ONGOING = CHECKED
     Route: 065
     Dates: start: 20190226
  5. LYRICA [Concomitant]
     Active Substance: PREGABALIN
     Indication: BACK PAIN
     Dosage: UNK
     Route: 065
     Dates: start: 20181227, end: 20190226
  6. CAPECITABINE. [Suspect]
     Active Substance: CAPECITABINE
     Dosage: 3500 MG, 1X/DAY;
     Route: 048
     Dates: start: 20180904, end: 20180910
  7. CAPECITABINE. [Suspect]
     Active Substance: CAPECITABINE
     Dosage: 3500 MG, 1X/DAY;
     Route: 048
     Dates: start: 20190527
  8. ZOLPIDEM [Concomitant]
     Active Substance: ZOLPIDEM TARTRATE
     Dosage: UNK, ONGOING = NOT CHECKED
     Route: 065
     Dates: start: 20190215, end: 20190315
  9. NOVALGIN (METAMIZOLE SODIUM) [Concomitant]
     Active Substance: METAMIZOLE SODIUM
     Indication: HEPATIC PAIN
     Dosage: UNK; ONGOING = CHECKED
     Route: 065
     Dates: start: 20170327
  10. DEXAMETHASON [DEXAMETHASONE] [Concomitant]
     Active Substance: DEXAMETHASONE
     Dosage: UNK
     Route: 065
     Dates: start: 20170829, end: 20181013
  11. TRASTUZUMAB. [Suspect]
     Active Substance: TRASTUZUMAB
     Indication: HER-2 POSITIVE BREAST CANCER
     Dosage: 480 MG, EVERY 3 WEEKS;
     Route: 041
     Dates: start: 20170306
  12. TRASTUZUMAB. [Suspect]
     Active Substance: TRASTUZUMAB
     Dosage: 480 MG, EVERY 3 WEEKS;
     Route: 041
     Dates: start: 20190527
  13. CAPECITABINE. [Suspect]
     Active Substance: CAPECITABINE
     Indication: HER-2 POSITIVE BREAST CANCER
     Dosage: 3500 MG, 1X/DAY;
     Route: 048
  14. KYTRIL [Concomitant]
     Active Substance: GRANISETRON HYDROCHLORIDE
     Dosage: UNK
     Route: 065
     Dates: start: 20171212, end: 20181013
  15. DAFLON [DIOSMIN;HESPERIDIN] [Concomitant]
     Dosage: UNK; ONGOING = CHECKED
     Route: 065
  16. CONCOR COR [Concomitant]
     Active Substance: BISOPROLOL FUMARATE
     Dosage: UNK
  17. PERTUZUMAB. [Suspect]
     Active Substance: PERTUZUMAB
     Indication: HER-2 POSITIVE BREAST CANCER
     Dosage: 420 MG, EVERY 3 WEEKS
     Route: 042
     Dates: start: 20170306, end: 20171121
  18. SUCRALFAT [Concomitant]
     Active Substance: SUCRALFATE
     Dosage: UNK
  19. LAEVOLAC [Concomitant]
     Active Substance: LACTULOSE
     Dosage: UNK; ONGOING = CHECKED
     Route: 065
     Dates: start: 20171212
  20. NAVELBINE [Suspect]
     Active Substance: VINORELBINE TARTRATE
     Dosage: 50 MG, UNK
     Route: 048
     Dates: start: 20170627
  21. TRITTICO [Concomitant]
     Active Substance: TRAZODONE HYDROCHLORIDE
     Dosage: UNK
     Route: 065
     Dates: start: 20181215, end: 20190226
  22. TRASTUZUMAB. [Suspect]
     Active Substance: TRASTUZUMAB
     Dosage: 480 MG, EVERY 3 WEEKS;
     Route: 041
     Dates: start: 20180904
  23. TRASTUZUMAB. [Suspect]
     Active Substance: TRASTUZUMAB
     Dosage: 480 MG, EVERY 3 WEEKS;
     Route: 041
     Dates: start: 20181023
  24. EMEND [Concomitant]
     Active Substance: APREPITANT
     Dosage: UNK
     Route: 065
     Dates: start: 20180129, end: 20181015
  25. PANTOLOC [PANTOPRAZOLE] [Concomitant]
     Active Substance: PANTOPRAZOLE SODIUM
     Dosage: UNK; ONGOING = CHECKED
     Route: 065
     Dates: start: 20170302
  26. TRASTUZUMAB EMTANSINE [Suspect]
     Active Substance: ADO-TRASTUZUMAB EMTANSINE
     Indication: HER-2 POSITIVE BREAST CANCER
     Dosage: 3.6 MG/M2, EVERY 3 WEEKS
     Route: 042
     Dates: start: 20171212
  27. TRASTUZUMAB EMTANSINE [Suspect]
     Active Substance: ADO-TRASTUZUMAB EMTANSINE
     Dosage: 3.3 MG/M2, EVERY 3 WEEKS;
     Route: 042
     Dates: start: 20180515
  28. MIRTAZAPIN [Concomitant]
     Active Substance: MIRTAZAPINE
     Dosage: UNK, ONGOING = CHECKED
     Route: 065
     Dates: start: 20190315
  29. FORTECORTIN [DEXAMETHASONE] [Concomitant]
     Active Substance: DEXAMETHASONE
     Dosage: UNK, ONGOING = NOT CHECKED
     Route: 065
     Dates: start: 20190215, end: 20190215
  30. NOVALGIN (METAMIZOLE SODIUM) [Concomitant]
     Active Substance: METAMIZOLE SODIUM
     Indication: BACK PAIN
     Dosage: UNK; ONGOING = CHECKED
     Route: 065
     Dates: start: 20170327
  31. HYDAL [Concomitant]
     Active Substance: HYDROMORPHONE HYDROCHLORIDE
     Dosage: UNK; ONGOING = CHECKED
     Route: 065
     Dates: start: 20180628
  32. TRASTUZUMAB EMTANSINE [Suspect]
     Active Substance: ADO-TRASTUZUMAB EMTANSINE
     Dosage: 3.3 MG/M2, EVERY 3 WEEKS;
     Route: 042
     Dates: start: 20180424
  33. NAVELBINE [Suspect]
     Active Substance: VINORELBINE TARTRATE
     Indication: HER-2 POSITIVE BREAST CANCER
     Dosage: 50 MG, UNK.
     Route: 048
     Dates: start: 20170306
  34. LIXIANA [Concomitant]
     Active Substance: EDOXABAN TOSYLATE
     Indication: PULMONARY EMBOLISM
     Dosage: UNK; ONGOING = CHECKED
     Route: 065
     Dates: start: 20190315
  35. PASPERTIN [METOCLOPRAMIDE HYDROCHLORIDE] [Concomitant]
     Active Substance: METOCLOPRAMIDE HYDROCHLORIDE
     Dosage: UNK; ONGOING = CHECKED
     Route: 065
     Dates: start: 20171212
  36. EMEND [Concomitant]
     Active Substance: APREPITANT
     Dosage: UNK
     Route: 065
     Dates: start: 20180128, end: 20181014
  37. EMEND [Concomitant]
     Active Substance: APREPITANT
     Dosage: UNK
     Route: 065
     Dates: start: 20180127, end: 20181013
  38. NOVALGIN (METAMIZOLE SODIUM) [Concomitant]
     Active Substance: METAMIZOLE SODIUM
     Dosage: UNK
     Route: 065
     Dates: start: 20171212
  39. HYDAL [Concomitant]
     Active Substance: HYDROMORPHONE HYDROCHLORIDE
     Indication: BACK PAIN
     Dosage: UNK
     Route: 065
     Dates: start: 20181227

REACTIONS (8)
  - Vertigo [Recovered/Resolved]
  - Polyneuropathy [Not Recovered/Not Resolved]
  - Polyneuropathy [Recovered/Resolved]
  - Dyspnoea exertional [Not Recovered/Not Resolved]
  - Angina pectoris [Recovered/Resolved]
  - Headache [Recovered/Resolved]
  - Vertigo [Not Recovered/Not Resolved]
  - Blindness [Recovered/Resolved with Sequelae]

NARRATIVE: CASE EVENT DATE: 20180904
